FAERS Safety Report 14314659 (Version 3)
Quarter: 2018Q2

REPORT INFORMATION
  Report Type: Report from Study
  Country: DE (occurrence: DE)
  Receive Date: 20171221
  Receipt Date: 20180506
  Transmission Date: 20180711
  Serious: Yes (Other)
  Sender: FDA-Public Use
  Company Number: PHHY2017DE182851

PATIENT
  Sex: Female
  Weight: 104 kg

DRUGS (19)
  1. VOTRIENT [Suspect]
     Active Substance: PAZOPANIB HYDROCHLORIDE
     Dosage: 400 MG, QD
     Route: 048
     Dates: start: 20170307, end: 20170507
  2. L-THYROXIN HENNING [Concomitant]
     Active Substance: LEVOTHYROXINE SODIUM
     Indication: HYPOTHYROIDISM
     Dosage: 25 UG, QD
     Route: 048
     Dates: start: 19990104
  3. ADENURIC [Concomitant]
     Active Substance: FEBUXOSTAT
     Indication: METABOLIC SYNDROME
     Dosage: 80 MG, QD
     Route: 048
     Dates: start: 19500102
  4. VOTRIENT [Suspect]
     Active Substance: PAZOPANIB HYDROCHLORIDE
     Dosage: 400 MG, QD
     Route: 048
     Dates: start: 20170830, end: 20170913
  5. XARELTO [Concomitant]
     Active Substance: RIVAROXABAN
     Indication: CORONARY ARTERY DISEASE
     Dosage: 15 MG, QD
     Route: 048
     Dates: start: 20120109
  6. VOTRIENT [Suspect]
     Active Substance: PAZOPANIB HYDROCHLORIDE
     Indication: METASTATIC RENAL CELL CARCINOMA
     Dosage: 800 MG, QD
     Route: 048
     Dates: start: 20160812, end: 20170306
  7. VOTRIENT [Suspect]
     Active Substance: PAZOPANIB HYDROCHLORIDE
     Dosage: 800 MG, QD
     Route: 048
     Dates: start: 20170914, end: 20180206
  8. JANUVIA [Concomitant]
     Active Substance: SITAGLIPTIN PHOSPHATE
     Indication: DIABETES MELLITUS
     Dosage: 50 MG, QD
     Route: 048
     Dates: start: 19500102
  9. LERCANIDIPIN ACTAVIS [Concomitant]
     Active Substance: LERCANIDIPINE
     Indication: METABOLIC SYNDROME
     Dosage: 10 MG, BID
     Route: 048
     Dates: start: 19500102
  10. PANTOZOL [Concomitant]
     Active Substance: PANTOPRAZOLE SODIUM
     Indication: PROPHYLAXIS
     Dosage: 40 MG, QD
     Route: 048
     Dates: start: 20050103
  11. VALSARTAN HENNIG [Concomitant]
     Indication: ATRIOVENTRICULAR BLOCK SECOND DEGREE
     Dosage: 16 MG, QD
     Route: 048
     Dates: start: 20120102
  12. VOTRIENT [Suspect]
     Active Substance: PAZOPANIB HYDROCHLORIDE
     Dosage: 800 MG, QD
     Route: 048
     Dates: start: 20170508, end: 20170718
  13. VOTRIENT [Suspect]
     Active Substance: PAZOPANIB HYDROCHLORIDE
     Dosage: 400 MG, QD
     Route: 048
     Dates: start: 20180207
  14. TORASEMID BETA [Concomitant]
     Indication: ATRIOVENTRICULAR BLOCK SECOND DEGREE
     Dosage: 37.5 MG, BID
     Route: 048
     Dates: start: 20120102
  15. DEKRISTOL [Concomitant]
     Active Substance: CHOLECALCIFEROL
     Indication: HYPOTHYROIDISM
     Dosage: 0.5 MG, QD
     Route: 048
     Dates: start: 19990104
  16. FERRO SANOL [Concomitant]
     Active Substance: FERROUS GLYCINE SULFATE
     Indication: PROPHYLAXIS
     Dosage: 40 MG, BID
     Route: 048
     Dates: start: 20120109
  17. NEBIVOLOL. [Concomitant]
     Active Substance: NEBIVOLOL
     Indication: METABOLIC SYNDROME
     Dosage: 5 MG, QD
     Route: 048
     Dates: start: 20050103
  18. AMITRIPTYLIN BETA [Concomitant]
     Indication: DEPRESSION
     Dosage: 25 MG, QD
     Route: 048
     Dates: start: 20140106
  19. SIMVASTATIN RATIOPHARM [Concomitant]
     Active Substance: SIMVASTATIN
     Indication: ATRIOVENTRICULAR BLOCK SECOND DEGREE
     Dosage: 20 MG, QD
     Route: 048
     Dates: start: 20120102

REACTIONS (1)
  - Anaemia [Recovered/Resolved]

NARRATIVE: CASE EVENT DATE: 20171206
